FAERS Safety Report 15135489 (Version 1)
Quarter: 2018Q3

REPORT INFORMATION
  Report Type: Spontaneous
  Country: FI (occurrence: FI)
  Receive Date: 20180712
  Receipt Date: 20180712
  Transmission Date: 20181010
  Serious: Yes (Congenital Anomaly, Other)
  Sender: FDA-Public Use
  Company Number: FI-ASTRAZENECA-2018SE87108

PATIENT
  Age: 0 Day
  Sex: Male

DRUGS (19)
  1. TENOX (AMLODIPINE) NOS [Suspect]
     Active Substance: AMLODIPINE BESYLATE OR AMLODIPINE MALEATE
     Indication: PRODUCT USED FOR UNKNOWN INDICATION
     Dosage: NON?AZ PRODUCT, 10 MG, AS NECESSARY, 1 TABLET IN THE EVENINGS
     Route: 064
  2. OPAMOX [Suspect]
     Active Substance: OXAZEPAM
     Indication: PRODUCT USED FOR UNKNOWN INDICATION
     Dosage: (BRAND NAME?OXAMIN), 15 MG, AS NECESSARY, MAX 45 MG/DAILY AS REQUIRED
     Route: 064
  3. LORAZEPAM. [Suspect]
     Active Substance: LORAZEPAM
     Indication: PRODUCT USED FOR UNKNOWN INDICATION
     Dosage: 2 MG/ML INJECTION, AS NECESSARY, 4 MG (MAX 8 MG/DAY)
     Route: 064
  4. SEROQUEL [Suspect]
     Active Substance: QUETIAPINE FUMARATE
     Indication: PRODUCT USED FOR UNKNOWN INDICATION
     Route: 064
  5. OPAMOX [Suspect]
     Active Substance: OXAZEPAM
     Indication: PRODUCT USED FOR UNKNOWN INDICATION
     Dosage: 15?30MG (MAX 30 MG/DAY) AS REQUIRED
     Route: 064
  6. OBSIDAN (FERROUS GLYCINE SULFATE) [Suspect]
     Active Substance: FERROUS GLYCINE SULFATE
     Indication: PRODUCT USED FOR UNKNOWN INDICATION
     Route: 064
     Dates: start: 2017
  7. SEROQUEL [Suspect]
     Active Substance: QUETIAPINE FUMARATE
     Indication: PRODUCT USED FOR UNKNOWN INDICATION
     Dosage: (BRAND NAME?KETIPINOR), 200MG, DAILY
     Route: 064
  8. SEROQUEL [Suspect]
     Active Substance: QUETIAPINE FUMARATE
     Indication: PRODUCT USED FOR UNKNOWN INDICATION
     Dosage: (BRAND NAME?KETIPINOR), 100MG + 100 MG + 200 MG EVERY DAY
     Route: 064
  9. SEROQUEL [Suspect]
     Active Substance: QUETIAPINE FUMARATE
     Indication: PRODUCT USED FOR UNKNOWN INDICATION
     Dosage: (BRAND NAME?KETIPINOR), 100 MG, 1?2 TABS DAILY
     Route: 064
  10. SEROQUEL [Suspect]
     Active Substance: QUETIAPINE FUMARATE
     Indication: PRODUCT USED FOR UNKNOWN INDICATION
     Route: 064
  11. EMGESAN [Suspect]
     Active Substance: MAGNESIUM HYDROXIDE
     Indication: PRODUCT USED FOR UNKNOWN INDICATION
     Dosage: AS NECESSARY, 125 MG MAX 250 MG/DAILY
     Route: 064
  12. SEROQUEL [Suspect]
     Active Substance: QUETIAPINE FUMARATE
     Indication: PRODUCT USED FOR UNKNOWN INDICATION
     Route: 064
  13. TENOX (AMLODIPINE) NOS [Suspect]
     Active Substance: AMLODIPINE BESYLATE OR AMLODIPINE MALEATE
     Indication: PRODUCT USED FOR UNKNOWN INDICATION
     Dosage: NON?AZ PRODUCT, AS NECESSARY, UP TO MAX 20 MG/DAY
     Route: 064
  14. ACETAMINOPHEN. [Suspect]
     Active Substance: ACETAMINOPHEN
     Indication: PRODUCT USED FOR UNKNOWN INDICATION
     Dosage: 1 G, AS NECESSARY, MAX 3 G PER DAY
     Route: 064
  15. OPAMOX [Suspect]
     Active Substance: OXAZEPAM
     Indication: PRODUCT USED FOR UNKNOWN INDICATION
     Dosage: 15.0MG AS REQUIRED
     Route: 064
  16. SEROQUEL [Suspect]
     Active Substance: QUETIAPINE FUMARATE
     Indication: PRODUCT USED FOR UNKNOWN INDICATION
     Dosage: (BRAND NAME?KETIPINOR)50 MG + 50 MG + 200MG EVERY DAY
     Route: 064
  17. SEROQUEL [Suspect]
     Active Substance: QUETIAPINE FUMARATE
     Indication: PRODUCT USED FOR UNKNOWN INDICATION
     Dosage: (BRAND NAME?KETIPINOR) 100 MG, AS NECESSARY, ADDITIONALLY (MAX 300 MG/DAILY)
     Route: 064
  18. SEROQUEL [Suspect]
     Active Substance: QUETIAPINE FUMARATE
     Indication: PRODUCT USED FOR UNKNOWN INDICATION
     Dosage: (BRAND NAME?KETIPINOR) 100 MG ADDITIONALLY, AS NECESSARY, 1 TABLET (MAX 400 MG/DAY)
     Route: 064
  19. SEROQUEL [Suspect]
     Active Substance: QUETIAPINE FUMARATE
     Indication: PRODUCT USED FOR UNKNOWN INDICATION
     Dosage: (BRAND NAME?KETIPINOR) INCREASED, AS NECESSARY, UP TO MAX 600 MG/DAY
     Route: 064

REACTIONS (10)
  - Polydactyly [Unknown]
  - Maternal drugs affecting foetus [None]
  - Heterotaxia [None]
  - Premature baby [Unknown]
  - Poor sucking reflex [Unknown]
  - Heart disease congenital [Not Recovered/Not Resolved]
  - Congenital anomaly [Unknown]
  - Foetal exposure during pregnancy [Unknown]
  - Low birth weight baby [Unknown]
  - Congenital renal disorder [Unknown]

NARRATIVE: CASE EVENT DATE: 20171106
